FAERS Safety Report 10841283 (Version 1)
Quarter: 2015Q1

REPORT INFORMATION
  Report Type: Spontaneous
  Country: AU (occurrence: AU)
  Receive Date: 20150220
  Receipt Date: 20150220
  Transmission Date: 20150721
  Serious: Yes (Other)
  Sender: FDA-Public Use
  Company Number: AU-ACCORD-028729

PATIENT
  Sex: Male
  Weight: 3.61 kg

DRUGS (3)
  1. THYROXINE [Concomitant]
     Active Substance: LEVOTHYROXINE
  2. QUETIAPINE [Suspect]
     Active Substance: QUETIAPINE
     Indication: PRODUCT USED FOR UNKNOWN INDICATION
  3. LAMOTRIGINE. [Suspect]
     Active Substance: LAMOTRIGINE
     Indication: PRODUCT USED FOR UNKNOWN INDICATION
     Dosage: INITIALLY RECEIVED 400 MG/DAY, AND DOSE INCREASED TO 500 MG/DAY AT 30 WEEKS^ GESTATION.

REACTIONS (4)
  - Hypoxic-ischaemic encephalopathy [Recovering/Resolving]
  - Subgaleal haematoma [Recovering/Resolving]
  - Neonatal behavioural syndrome [Recovering/Resolving]
  - Foetal exposure during pregnancy [Unknown]
